FAERS Safety Report 8198150-X (Version None)
Quarter: 2012Q1

REPORT INFORMATION
  Report Type: 
  Country: None (occurrence: None)
  Receive Date: 20120309
  Receipt Date: 20120229
  Transmission Date: 20120608
  Serious: Yes (Other)
  Sender: FDA-Public Use
  Company Number: JP-SANOFI-AVENTIS-2012SA014757

PATIENT
  Age: 64 Year
  Sex: Male
  Weight: 65 kg

DRUGS (10)
  1. INSULIN GLARGINE [Suspect]
     Dosage: DOSE INCREASED
     Route: 065
  2. INSULIN ASPART [Suspect]
     Route: 065
     Dates: start: 20090105
  3. VOGLIBOSE [Concomitant]
  4. INSULIN GLARGINE [Suspect]
     Route: 065
     Dates: start: 20090105
  5. INSULIN ASPART [Suspect]
     Dosage: DOSE INCREASED
     Route: 065
  6. INSULIN [Suspect]
     Indication: TYPE 2 DIABETES MELLITUS
     Route: 065
     Dates: end: 20090105
  7. INSULIN GLARGINE [Suspect]
     Dosage: INCREASED DOSE OF TOTAL INSULIN OF 96 UNITS
     Route: 065
     Dates: start: 20090310
  8. INSULIN ASPART [Suspect]
     Indication: TYPE 2 DIABETES MELLITUS
     Route: 040
     Dates: start: 20080901
  9. INSULIN ASPART [Suspect]
     Route: 065
     Dates: start: 20090310
  10. INSULIN GLARGINE [Suspect]
     Indication: TYPE 2 DIABETES MELLITUS
     Route: 040
     Dates: start: 20080901

REACTIONS (5)
  - DIABETES MELLITUS INADEQUATE CONTROL [None]
  - TYPE 1 DIABETES MELLITUS [None]
  - HYPERGLYCAEMIA [None]
  - IMPAIRED INSULIN SECRETION [None]
  - INSULIN C-PEPTIDE DECREASED [None]
